FAERS Safety Report 23294295 (Version 1)
Quarter: 2023Q4

REPORT INFORMATION
  Report Type: Spontaneous
  Country: None (occurrence: US)
  Receive Date: 20231213
  Receipt Date: 20231213
  Transmission Date: 20240110
  Serious: No
  Sender: FDA-Public Use
  Company Number: US-Harrow Eye-2149323

PATIENT
  Sex: Female

DRUGS (3)
  1. XIIDRA [Suspect]
     Active Substance: LIFITEGRAST
     Indication: Product used for unknown indication
  2. MOXIFLOXACIN [Suspect]
     Active Substance: MOXIFLOXACIN
  3. PREDNISOLONE ACETATE [Suspect]
     Active Substance: PREDNISOLONE ACETATE

REACTIONS (6)
  - Skin irritation [Unknown]
  - Discomfort [Unknown]
  - Pruritus [Unknown]
  - Eye irritation [Unknown]
  - Conjunctivitis [Unknown]
  - Dry eye [Unknown]
